FAERS Safety Report 21849659 (Version 3)
Quarter: 2023Q1

REPORT INFORMATION
  Report Type: Report from Study
  Country: US (occurrence: US)
  Receive Date: 20230111
  Receipt Date: 20230321
  Transmission Date: 20230417
  Serious: Yes (Other)
  Sender: FDA-Public Use
  Company Number: US-ABBVIE-4264113

PATIENT
  Age: 48 Year
  Sex: Female

DRUGS (2)
  1. HUMIRA [Suspect]
     Active Substance: ADALIMUMAB
     Indication: Hidradenitis
     Route: 058
     Dates: start: 20210203
  2. HUMIRA [Suspect]
     Active Substance: ADALIMUMAB
     Route: 058
     Dates: start: 202102

REACTIONS (4)
  - Cyst [Recovered/Resolved]
  - Migraine [Recovering/Resolving]
  - Neuralgia [Recovering/Resolving]
  - Knee operation [Recovered/Resolved]

NARRATIVE: CASE EVENT DATE: 20210701
